FAERS Safety Report 9831225 (Version 2)
Quarter: 2014Q1

REPORT INFORMATION
  Report Type: Spontaneous
  Country: US (occurrence: US)
  Receive Date: 20140121
  Receipt Date: 20140211
  Transmission Date: 20141002
  Serious: Yes (Hospitalization)
  Sender: FDA-Public Use
  Company Number: US-MERCK-1401USA006755

PATIENT
  Sex: Male

DRUGS (1)
  1. SYLATRON [Suspect]
     Indication: MALIGNANT MELANOMA
     Dosage: 6 MICROGRAM PER KILOGRAM, UNK
     Route: 058
     Dates: start: 201311

REACTIONS (2)
  - Haemoglobin decreased [Unknown]
  - Transfusion [Unknown]
